FAERS Safety Report 7971103-X (Version None)
Quarter: 2011Q4

REPORT INFORMATION
  Report Type: 
  Country: None (occurrence: None)
  Receive Date: 20111212
  Receipt Date: 20111212
  Transmission Date: 20120403
  Serious: Yes (Other)
  Sender: FDA-Public Use
  Company Number: None

PATIENT
  Age: 63 Year
  Sex: Female
  Weight: 48.08 kg

DRUGS (2)
  1. LEVAQUIN [Suspect]
     Indication: PNEUMONIA
     Dosage: 705 MG
     Route: 042
     Dates: start: 20100518, end: 20100524
  2. PREDNISONE TAB [Concomitant]

REACTIONS (17)
  - HEART RATE INCREASED [None]
  - POISONING [None]
  - ECONOMIC PROBLEM [None]
  - ABASIA [None]
  - RESPIRATORY FAILURE [None]
  - ROTATOR CUFF SYNDROME [None]
  - FEELING ABNORMAL [None]
  - IMPAIRED DRIVING ABILITY [None]
  - PAIN [None]
  - MUSCULAR WEAKNESS [None]
  - DEPRESSION [None]
  - WEIGHT DECREASED [None]
  - CACHEXIA [None]
  - GRIP STRENGTH DECREASED [None]
  - CATHETER SITE PAIN [None]
  - BURNING SENSATION [None]
  - DYSPEPSIA [None]
